FAERS Safety Report 9171536 (Version 2)
Quarter: 2013Q1

REPORT INFORMATION
  Report Type: Spontaneous
  Country: US (occurrence: None)
  Receive Date: 20130130
  Receipt Date: 20130225
  Transmission Date: 20140127
  Serious: Yes (Other)
  Sender: FDA-Public Use
  Company Number: 2013034504

PATIENT
  Sex: Female
  Weight: 56.7 kg

DRUGS (8)
  1. HIZENTRA (IMMUNOGLOBULIN HUMAN NORMAL) [Suspect]
     Indication: IMMUNODEFICIENCY COMMON VARIABLE
     Dosage: 10 G 1X/WEEK, 2 GM 10 ML VIAL; 4 SITES OVER 1-2 HOURS SUBCUTANEOUS
     Route: 058
     Dates: start: 20130115, end: 20130115
  2. HIZENTRA (IMMUNOGLOBULIN HUMAN NORMAL) [Suspect]
     Indication: PARASITIC GASTROENTERITIS
     Dosage: 10 G 1X/WEEK, 2 GM 10 ML VIAL; 4 SITES OVER 1-2 HOURS SUBCUTANEOUS
     Route: 058
     Dates: start: 20130115, end: 20130115
  3. BENADRYL (DIPHENHYDRAMINE HYDROCHLORIDE) [Concomitant]
  4. ALINIA (NITAZOXANIDE) [Concomitant]
  5. ACETAMINOPHEN (PARACETAMOL) [Concomitant]
  6. EPIPEN (EPINEPHRINE) [Concomitant]
  7. PROGESTERONE (PROGESTERONE) [Concomitant]
  8. ESTRADIOL TDS (ESTRADIOL) [Concomitant]

REACTIONS (11)
  - Erythema [None]
  - Infusion site warmth [None]
  - Contusion [None]
  - Fatigue [None]
  - Pain [None]
  - Pain in extremity [None]
  - Crying [None]
  - Abdominal pain [None]
  - Off label use [None]
  - Tendonitis [None]
  - Infusion site pain [None]
